FAERS Safety Report 8352221-3 (Version None)
Quarter: 2012Q2

REPORT INFORMATION
  Report Type: 
  Country: None (occurrence: None)
  Receive Date: 20120511
  Receipt Date: 20120504
  Transmission Date: 20120825
  Serious: Yes (Other)
  Sender: FDA-Public Use
  Company Number: US-CELGENEUS-163-21880-12050651

PATIENT
  Sex: Male
  Weight: 100.79 kg

DRUGS (6)
  1. REVLIMID [Suspect]
     Dosage: 10 MILLIGRAM
     Route: 048
     Dates: start: 20101201
  2. LISINOPRIL [Concomitant]
     Route: 065
  3. HUMALOG [Concomitant]
     Route: 065
  4. REVLIMID [Suspect]
     Indication: MULTIPLE MYELOMA
     Dosage: 25 MILLIGRAM
     Route: 048
     Dates: start: 20101101, end: 20101201
  5. ASPIRIN [Concomitant]
     Route: 065
  6. INSULIN [Concomitant]
     Dosage: 15 UNITS
     Route: 065

REACTIONS (2)
  - LEG AMPUTATION [None]
  - MULTIPLE MYELOMA [None]
